FAERS Safety Report 5065200-9 (Version None)
Quarter: 2006Q3

REPORT INFORMATION
  Report Type: 
  Country: None (occurrence: None)
  Receive Date: 20060703
  Receipt Date: 20060124
  Transmission Date: 20061208
  Serious: Yes (Other)
  Sender: FDA-Public Use
  Company Number: 2006-0009156

PATIENT
  Sex: Male

DRUGS (1)
  1. VIREAD [Suspect]

REACTIONS (2)
  - BLOOD CREATININE INCREASED [None]
  - RENAL FAILURE CHRONIC [None]
